FAERS Safety Report 12094944 (Version 1)
Quarter: 2016Q1

REPORT INFORMATION
  Report Type: Spontaneous
  Country: IT (occurrence: IT)
  Receive Date: 20160219
  Receipt Date: 20160219
  Transmission Date: 20160526
  Serious: No
  Sender: FDA-Public Use
  Company Number: IT-PERNIX THERAPEUTICS-2015PT000162

PATIENT

DRUGS (2)
  1. CEDAX [Suspect]
     Active Substance: CEFTIBUTEN DIHYDRATE
     Dosage: STRENGTH 36 MG/ML, 1 DF, QD
     Route: 048
     Dates: start: 20150110, end: 20150117
  2. TACHIPIRINA [Concomitant]
     Active Substance: ACETAMINOPHEN

REACTIONS (2)
  - Mucosal inflammation [Recovering/Resolving]
  - Stomatitis [Recovering/Resolving]

NARRATIVE: CASE EVENT DATE: 20150117
